FAERS Safety Report 20418634 (Version 2)
Quarter: 2022Q1

REPORT INFORMATION
  Report Type: Spontaneous
  Country: US (occurrence: US)
  Receive Date: 20220202
  Receipt Date: 20220304
  Transmission Date: 20220423
  Serious: No
  Sender: FDA-Public Use
  Company Number: US-SA-SAC20220129000191

PATIENT
  Sex: Male

DRUGS (3)
  1. DUPIXENT [Suspect]
     Active Substance: DUPILUMAB
     Indication: Dermatitis atopic
     Dosage: 400 MG, 1X
     Route: 058
  2. DUPIXENT [Suspect]
     Active Substance: DUPILUMAB
     Dosage: 200 MG, QOW
     Route: 058
     Dates: start: 20211227
  3. EUCERIN [DL- LACTIC ACID] [Concomitant]
     Dosage: 1 %

REACTIONS (3)
  - Injection site pain [Recovering/Resolving]
  - Erythema of eyelid [Recovering/Resolving]
  - Blepharitis [Recovering/Resolving]
